FAERS Safety Report 18891603 (Version 1)
Quarter: 2021Q1

REPORT INFORMATION
  Report Type: Spontaneous
  Country: US (occurrence: US)
  Receive Date: 20210215
  Receipt Date: 20210215
  Transmission Date: 20210420
  Serious: No
  Sender: FDA-Public Use
  Company Number: US-CELLTRION INC.-2020US032777

PATIENT

DRUGS (4)
  1. TRUXIMA [Suspect]
     Active Substance: RITUXIMAB-ABBS
     Indication: EVANS SYNDROME
     Dosage: 910 MG D1, 8, 15, 22 Q 6 M
     Dates: start: 20200829
  2. TRUXIMA [Suspect]
     Active Substance: RITUXIMAB-ABBS
     Dosage: 910 MG D1, 8, 15, 22 Q 6 M
     Dates: start: 20200905
  3. TRUXIMA [Suspect]
     Active Substance: RITUXIMAB-ABBS
     Dosage: 910 MG D1, 8, 15, 22 Q 6 M
     Dates: start: 20200912
  4. TRUXIMA [Suspect]
     Active Substance: RITUXIMAB-ABBS
     Dosage: 910 MG D1, 8, 15, 22 Q 6 M
     Dates: start: 20200919

REACTIONS (1)
  - Off label use [Unknown]
